FAERS Safety Report 5944904-7 (Version None)
Quarter: 2008Q4

REPORT INFORMATION
  Report Type: 
  Country: None (occurrence: None)
  Receive Date: 20081021
  Receipt Date: 20080128
  Transmission Date: 20090506
  Serious: Yes (Hospitalization, Other)
  Sender: FDA-Public Use
  Company Number: US-WYE-H02338408

PATIENT
  Age: 95 Year
  Sex: Female

DRUGS (9)
  1. PREMARIN [Suspect]
     Indication: HORMONE REPLACEMENT THERAPY
     Dosage: 0.625 MG, ORAL
     Route: 048
     Dates: start: 19780101, end: 20080114
  2. ACETYLSALICYLIC ACID SRT [Concomitant]
  3. SYNTHROID [Concomitant]
  4. NITRO-DUR [Concomitant]
  5. CEPHALEXIN [Concomitant]
  6. QUININE SULFATE (QUININE SULFATE) [Concomitant]
  7. ISOSORBIDE (ISOSORBIDE) [Concomitant]
  8. TRIAMTERENE (TRIAMTERENE) [Concomitant]
  9. DOXYCYCLINE [Concomitant]

REACTIONS (1)
  - PULMONARY EMBOLISM [None]
